FAERS Safety Report 5507353-1 (Version None)
Quarter: 2007Q4

REPORT INFORMATION
  Report Type: 
  Country: None (occurrence: None)
  Receive Date: 20071030
  Receipt Date: 20070613
  Transmission Date: 20080405
  Serious: No
  Sender: FDA-Public Use
  Company Number: WAES 0704USA01056

PATIENT
  Age: 52 Year
  Sex: Female
  Weight: 143.7903 kg

DRUGS (6)
  1. JANUVIA [Suspect]
     Indication: TYPE 2 DIABETES MELLITUS
     Dosage: 100 MG/DAILY/PO;  DAILY/PO
     Route: 048
  2. LIPITOR [Concomitant]
  3. TARKA [Concomitant]
  4. TOPROL-XL [Concomitant]
  5. GLIPIZIDE [Concomitant]
  6. METFORMIN HCL [Concomitant]

REACTIONS (3)
  - NAUSEA [None]
  - VOMITING [None]
  - WRONG TECHNIQUE IN DRUG USAGE PROCESS [None]
